FAERS Safety Report 5724886-3 (Version None)
Quarter: 2008Q2

REPORT INFORMATION
  Report Type: 
  Country: None (occurrence: None)
  Receive Date: 20080501
  Receipt Date: 20080417
  Transmission Date: 20081010
  Serious: Yes (Hospitalization, Other)
  Sender: FDA-Public Use
  Company Number: DE-AMGEN-UK275146

PATIENT
  Sex: Male

DRUGS (11)
  1. NEUPOGEN [Suspect]
     Indication: CHEMOTHERAPY
     Route: 058
     Dates: start: 20080305
  2. BLEOMYCIN SULFATE [Concomitant]
     Route: 065
     Dates: start: 20080116
  3. ETOPOSIDE [Concomitant]
     Route: 065
     Dates: start: 20080116
  4. DOXORUBICIN HYDROCHLORIDE [Concomitant]
     Route: 065
     Dates: start: 20080116
  5. CYCLOPHOSPHAMIDE [Concomitant]
     Route: 065
     Dates: start: 20080116
  6. VINCRISTINE [Concomitant]
     Route: 065
     Dates: start: 20080116
  7. PROCARBAZINE [Concomitant]
     Route: 065
     Dates: start: 20080116
  8. PREDNISONE [Concomitant]
     Route: 065
     Dates: start: 20080116
  9. BACTRIM DS [Concomitant]
     Route: 065
  10. NEXIUM [Concomitant]
     Route: 065
  11. PONSTAN [Concomitant]
     Route: 065

REACTIONS (7)
  - APHASIA [None]
  - CEREBRAL ARTERY EMBOLISM [None]
  - DYSAESTHESIA [None]
  - DYSARTHRIA [None]
  - FACIAL PALSY [None]
  - HYPOAESTHESIA FACIAL [None]
  - PARAESTHESIA [None]
